FAERS Safety Report 8103637-1 (Version None)
Quarter: 2012Q1

REPORT INFORMATION
  Report Type: 
  Country: None (occurrence: None)
  Receive Date: 20120201
  Receipt Date: 20120117
  Transmission Date: 20120608
  Serious: Yes (Other)
  Sender: FDA-Public Use
  Company Number: US-ROCHE-1012889

PATIENT
  Sex: Female
  Weight: 89.438 kg

DRUGS (18)
  1. OMALIZUMAB [Suspect]
     Route: 058
     Dates: start: 20110825
  2. OMALIZUMAB [Suspect]
     Route: 058
     Dates: start: 20110908
  3. OMALIZUMAB [Suspect]
     Route: 058
     Dates: start: 20111215
  4. AMBIEN [Concomitant]
     Indication: INSOMNIA
  5. CITALOPRAM HYDROBROMIDE [Concomitant]
     Indication: AFFECTIVE DISORDER
  6. OMALIZUMAB [Suspect]
     Route: 058
     Dates: start: 20110922
  7. ABILIFY [Concomitant]
     Indication: DEPRESSION
  8. OMALIZUMAB [Suspect]
     Route: 058
     Dates: start: 20111201
  9. OMALIZUMAB [Suspect]
     Route: 058
     Dates: start: 20111013
  10. VENTOLIN [Concomitant]
     Indication: ASTHMA
  11. OMALIZUMAB [Suspect]
     Route: 058
     Dates: start: 20111121
  12. OMALIZUMAB [Suspect]
     Route: 058
     Dates: start: 20120105
  13. OMALIZUMAB [Suspect]
     Route: 058
     Dates: start: 20111103
  14. QVAR 40 [Concomitant]
     Indication: ASTHMA
  15. OMALIZUMAB [Suspect]
     Indication: ASTHMA
     Route: 058
     Dates: start: 20110715
  16. OMALIZUMAB [Suspect]
     Route: 058
     Dates: start: 20110811
  17. IMITREX [Concomitant]
     Indication: MIGRAINE
  18. ELAVIL [Concomitant]
     Indication: MIGRAINE

REACTIONS (2)
  - MATERNAL EXPOSURE DURING PREGNANCY [None]
  - ABORTION SPONTANEOUS [None]
